FAERS Safety Report 5836907-8 (Version None)
Quarter: 2008Q3

REPORT INFORMATION
  Report Type: 
  Country: None (occurrence: None)
  Receive Date: 20080805
  Receipt Date: 20080724
  Transmission Date: 20090109
  Serious: Yes (Death, Hospitalization, Other)
  Sender: FDA-Public Use
  Company Number: RENA-1000196

PATIENT
  Age: 73 Year
  Sex: Male

DRUGS (4)
  1. RENAGEL [Suspect]
     Indication: HYPERPHOSPHATAEMIA
     Dosage: 6.4 G, QD, ORAL
     Route: 048
     Dates: start: 20080322, end: 20080524
  2. SENSIPAR (CINACALCET HYDROCHLORIDE) [Concomitant]
  3. SINEMET [Concomitant]
  4. VYTORIN [Concomitant]

REACTIONS (5)
  - BLOOD CHOLESTEROL INCREASED [None]
  - CEREBROVASCULAR ACCIDENT [None]
  - DECREASED APPETITE [None]
  - DISEASE COMPLICATION [None]
  - RESTLESS LEGS SYNDROME [None]
